FAERS Safety Report 8365290-1 (Version None)
Quarter: 2012Q2

REPORT INFORMATION
  Report Type: 
  Country: None (occurrence: None)
  Receive Date: 20120516
  Receipt Date: 20120502
  Transmission Date: 20120825
  Serious: Yes (Hospitalization, Other)
  Sender: FDA-Public Use
  Company Number: TW-COVIDIEN/TYCO HEALTHCARE/MALLINCKRODT-T201201712

PATIENT
  Age: 1 Day
  Sex: Male
  Weight: 3.184 kg

DRUGS (4)
  1. AMPHETAMINES [Suspect]
  2. METHADOSE [Suspect]
     Dosage: UNK
     Route: 048
  3. METHAMPHETAMINE HYDROCHLORIDE [Suspect]
     Dosage: UNK
  4. HEROIN [Suspect]
     Dosage: UNK

REACTIONS (4)
  - INAPPROPRIATE AFFECT [None]
  - CEREBRAL DISORDER [None]
  - DRUG WITHDRAWAL SYNDROME NEONATAL [None]
  - DEVELOPMENTAL DELAY [None]
